FAERS Safety Report 15838310 (Version 1)
Quarter: 2019Q1

REPORT INFORMATION
  Report Type: Spontaneous
  Country: IR (occurrence: IR)
  Receive Date: 20190117
  Receipt Date: 20190117
  Transmission Date: 20190417
  Serious: Yes (Congenital Anomaly, Other)
  Sender: FDA-Public Use
  Company Number: IR-NOVOPROD-642058

PATIENT
  Sex: Male
  Weight: 3 kg

DRUGS (1)
  1. NOVORAPID [Suspect]
     Active Substance: INSULIN ASPART
     Indication: TYPE 2 DIABETES MELLITUS
     Dosage: 6 TDS
     Route: 064
     Dates: start: 20180623, end: 20181016

REACTIONS (3)
  - Congenital heart valve incompetence [Unknown]
  - Foetal exposure during pregnancy [Recovered/Resolved]
  - Neonatal respiratory failure [Unknown]

NARRATIVE: CASE EVENT DATE: 20180623
